FAERS Safety Report 9117287 (Version 2)
Quarter: 2013Q1

REPORT INFORMATION
  Report Type: Spontaneous
  Country: FR (occurrence: FR)
  Receive Date: 20130208
  Receipt Date: 20130314
  Transmission Date: 20140127
  Serious: Yes (Other)
  Sender: FDA-Public Use
  Company Number: FR-PFIZER INC-2013043317

PATIENT
  Age: 73 Year
  Sex: Female

DRUGS (3)
  1. TRIFLUCAN [Suspect]
     Indication: ORAL FUNGAL INFECTION
     Dosage: 50 MG, 1X/DAY
     Route: 048
     Dates: start: 20120913, end: 20120918
  2. EFFEXOR [Suspect]
     Indication: BIPOLAR I DISORDER
     Dosage: 75 MG, 1X/DAY
     Route: 048
     Dates: start: 2009
  3. EFFEXOR [Suspect]
     Indication: BIPOLAR I DISORDER
     Dosage: 37.5 MG, 1X/DAY
     Route: 048
     Dates: start: 201208, end: 20120918

REACTIONS (1)
  - Pancreatitis [Recovered/Resolved]
